FAERS Safety Report 4568466-4 (Version None)
Quarter: 2005Q1

REPORT INFORMATION
  Report Type: 
  Country: None (occurrence: None)
  Receive Date: 20050131
  Receipt Date: 20050117
  Transmission Date: 20050727
  Serious: Yes (Hospitalization, Other)
  Sender: FDA-Public Use
  Company Number: 2005015086

PATIENT
  Age: 91 Year
  Sex: Female
  Weight: 48.9885 kg

DRUGS (1)
  1. CELEBREX [Suspect]
     Indication: BACK PAIN

REACTIONS (3)
  - CARDIAC DISORDER [None]
  - DEAFNESS [None]
  - PERIPHERAL OCCLUSIVE DISEASE [None]
